FAERS Safety Report 18434975 (Version 1)
Quarter: 2020Q4

REPORT INFORMATION
  Report Type: Spontaneous
  Country: IE (occurrence: IE)
  Receive Date: 20201027
  Receipt Date: 20201027
  Transmission Date: 20210114
  Serious: No
  Sender: FDA-Public Use
  Company Number: IE-JAZZ-2020-IE-013431

PATIENT
  Age: 50 Year
  Sex: Female

DRUGS (1)
  1. XYREM [Suspect]
     Active Substance: SODIUM OXYBATE
     Indication: PRODUCT USED FOR UNKNOWN INDICATION
     Dosage: UNKNOWN DOSE AND UNKNOWN FREQUENCY
     Route: 048

REACTIONS (2)
  - Medication error [Unknown]
  - Drug ineffective [Unknown]
